FAERS Safety Report 22263307 (Version 1)
Quarter: 2023Q2

REPORT INFORMATION
  Report Type: Spontaneous
  Country: US (occurrence: US)
  Receive Date: 20230428
  Receipt Date: 20230428
  Transmission Date: 20230721
  Serious: Yes (Hospitalization)
  Sender: FDA-Public Use
  Company Number: US-ORG100016242-2023000132

PATIENT
  Sex: Female

DRUGS (2)
  1. EXPAREL [Suspect]
     Active Substance: BUPIVACAINE
     Indication: Surgery
     Route: 050
  2. BUPIVACAINE [Suspect]
     Active Substance: BUPIVACAINE
     Indication: Surgery
     Route: 050

REACTIONS (1)
  - Hospitalisation [Unknown]
